FAERS Safety Report 23497722 (Version 1)
Quarter: 2024Q1

REPORT INFORMATION
  Report Type: Spontaneous
  Country: FR (occurrence: FR)
  Receive Date: 20240208
  Receipt Date: 20240208
  Transmission Date: 20240410
  Serious: Yes (Other)
  Sender: FDA-Public Use
  Company Number: None

PATIENT
  Age: 56 Year
  Sex: Male
  Weight: 57 kg

DRUGS (3)
  1. AZITHROMYCIN [Suspect]
     Active Substance: AZITHROMYCIN
     Indication: Eye infection toxoplasmal
     Dosage: UNK
     Route: 048
     Dates: start: 20231114, end: 20231117
  2. SULFADIAZINE [Suspect]
     Active Substance: SULFADIAZINE
     Indication: Eye infection toxoplasmal
     Dosage: UNK
     Route: 048
     Dates: start: 20231117, end: 20231128
  3. PYRIMETHAMINE [Suspect]
     Active Substance: PYRIMETHAMINE
     Indication: Eye infection toxoplasmal
     Dosage: UNK
     Route: 048
     Dates: start: 20231114

REACTIONS (3)
  - Cholestasis [Not Recovered/Not Resolved]
  - Hepatic cytolysis [Not Recovered/Not Resolved]
  - Condition aggravated [Not Recovered/Not Resolved]

NARRATIVE: CASE EVENT DATE: 20231127
